FAERS Safety Report 25670148 (Version 1)
Quarter: 2025Q3

REPORT INFORMATION
  Report Type: Spontaneous
  Country: US (occurrence: US)
  Receive Date: 20250812
  Receipt Date: 20250812
  Transmission Date: 20251021
  Serious: No
  Sender: MERCK SHARP & DOHME LLC
  Company Number: US-009507513-2318058

PATIENT
  Age: 37 Year
  Sex: Male

DRUGS (2)
  1. PEMBROLIZUMAB [Suspect]
     Active Substance: PEMBROLIZUMAB
     Indication: B-cell lymphoma unclassifiable
  2. BRENTUXIMAB [Concomitant]
     Active Substance: BRENTUXIMAB
     Indication: B-cell lymphoma unclassifiable

REACTIONS (1)
  - Product use in unapproved indication [Unknown]
